FAERS Safety Report 6026615-5 (Version None)
Quarter: 2008Q4

REPORT INFORMATION
  Report Type: 
  Country: None (occurrence: None)
  Receive Date: 20081231
  Receipt Date: 20081223
  Transmission Date: 20090506
  Serious: Yes (Other)
  Sender: FDA-Public Use
  Company Number: CHPA2008US22676

PATIENT
  Age: 63 Year
  Sex: Female
  Weight: 90.2 kg

DRUGS (4)
  1. VOLTAREN [Suspect]
     Indication: PLANTAR FASCIITIS
     Dosage: 4 G, QID, TOPICAL; 4 G, QD, TOPICAL
     Route: 061
     Dates: start: 20081101, end: 20081201
  2. VOLTAREN [Suspect]
     Indication: PLANTAR FASCIITIS
     Dosage: 4 G, QID, TOPICAL; 4 G, QD, TOPICAL
     Route: 061
     Dates: start: 20081201, end: 20081216
  3. ZOLOFT [Concomitant]
  4. TRAZODONE HCL [Concomitant]

REACTIONS (1)
  - AMNESIA [None]
